FAERS Safety Report 25423429 (Version 1)
Quarter: 2025Q2

REPORT INFORMATION
  Report Type: Spontaneous
  Country: GB (occurrence: GB)
  Receive Date: 20250611
  Receipt Date: 20250611
  Transmission Date: 20250717
  Serious: Yes (Other)
  Sender: CIPLA
  Company Number: GB-MHRA-EMIS-464-c65f1a88-905a-4f0a-abec-bdd093f8bb38

PATIENT

DRUGS (4)
  1. FINASTERIDE [Suspect]
     Active Substance: FINASTERIDE
     Indication: Product used for unknown indication
     Dosage: 1 DOSAGE FORM, QD
     Route: 065
     Dates: start: 20250210, end: 20250416
  2. AMOXICILLIN [Concomitant]
     Active Substance: AMOXICILLIN
     Indication: Product used for unknown indication
     Dosage: 1 DOSAGE FORM, TID (ONE TO BE TAKEN THREE TIMES A DAY)
     Route: 065
     Dates: start: 20250131, end: 20250301
  3. DOXYCYCLINE [Concomitant]
     Active Substance: DOXYCYCLINE
     Indication: Lower respiratory tract infection
     Route: 065
     Dates: start: 20250204, end: 20250319
  4. SPIKEVAX [Concomitant]
     Active Substance: CX-046684
     Indication: Product used for unknown indication
     Route: 030
     Dates: start: 20250410, end: 20250410

REACTIONS (1)
  - Depressed mood [Recovered/Resolved]

NARRATIVE: CASE EVENT DATE: 20250416
